FAERS Safety Report 13956506 (Version 2)
Quarter: 2017Q3

REPORT INFORMATION
  Report Type: Spontaneous
  Country: US (occurrence: US)
  Receive Date: 20170912
  Receipt Date: 20170914
  Transmission Date: 20171128
  Serious: Yes (Other)
  Sender: FDA-Public Use
  Company Number: US-AUROBINDO-AUR-APL-2017-40358

PATIENT
  Age: 62 Year
  Sex: Male

DRUGS (3)
  1. TELAPREVIR [Suspect]
     Active Substance: TELAPREVIR
     Indication: HEPATITIS C VIRUS TEST POSITIVE
     Route: 065
  2. PEGYLATED INTERFERON NOS [Suspect]
     Active Substance: PEGINTERFERON ALFA-2A OR PEGINTERFERON ALFA-2B OR PEGINTERFERON BETA-1A OR PEGINTERFERON LAMBDA-1A
     Indication: HEPATITIS C VIRUS TEST POSITIVE
  3. RIBAVIRIN. [Suspect]
     Active Substance: RIBAVIRIN
     Indication: HEPATITIS C VIRUS TEST POSITIVE
     Route: 065

REACTIONS (11)
  - Condition aggravated [Unknown]
  - Blister [Unknown]
  - Dyspnoea [Unknown]
  - Balance disorder [Unknown]
  - Headache [Unknown]
  - Dizziness [Unknown]
  - Pancytopenia [Unknown]
  - Fatigue [Unknown]
  - Insomnia [Unknown]
  - Porphyria non-acute [Recovered/Resolved]
  - Decreased appetite [Unknown]
